FAERS Safety Report 16026123 (Version 1)
Quarter: 2019Q1

REPORT INFORMATION
  Report Type: Report from Study
  Country: CN (occurrence: CN)
  Receive Date: 20190302
  Receipt Date: 20190302
  Transmission Date: 20190418
  Serious: Yes (Hospitalization)
  Sender: FDA-Public Use
  Company Number: CN-JIANGSU HENGRUI MEDICINE CO., LTD.-2063441

PATIENT
  Age: 53 Year
  Sex: Male
  Weight: 59 kg

DRUGS (6)
  1. ENTECAVIR MALEATE [Concomitant]
  2. NIFEDIPINE. [Concomitant]
     Active Substance: NIFEDIPINE
  3. OXALIPLATIN INJECTION USP, 5 MG/ML, PACKAGED IN 50 MG/10 ML AND 100 MG [Suspect]
     Active Substance: OXALIPLATIN
     Indication: HEPATOCELLULAR CARCINOMA
     Dates: start: 20170901, end: 20171011
  4. FLUOROURACIL. [Suspect]
     Active Substance: FLUOROURACIL
     Dates: start: 20170901, end: 20171011
  5. CALCIUM LEVOFOLINATE [Suspect]
     Active Substance: LEVOLEUCOVORIN CALCIUM
     Dates: start: 20170901, end: 20171011
  6. SHR-1210 [Suspect]
     Active Substance: CAMRELIZUMAB
     Dates: start: 20170901, end: 20171011

REACTIONS (3)
  - Duodenal ulcer [Not Recovered/Not Resolved]
  - Multiple organ dysfunction syndrome [None]
  - Malignant neoplasm progression [None]

NARRATIVE: CASE EVENT DATE: 20171025
